FAERS Safety Report 10247312 (Version 1)
Quarter: 2014Q2

REPORT INFORMATION
  Report Type: Spontaneous
  Country: US (occurrence: US)
  Receive Date: 20140619
  Receipt Date: 20140619
  Transmission Date: 20141212
  Serious: No
  Sender: FDA-Public Use
  Company Number: US-JNJFOC-20140604956

PATIENT
  Sex: Male

DRUGS (1)
  1. DURAGESIC [Suspect]
     Indication: PAIN
     Dosage: 100 + 50 UG/HR PATCHES
     Route: 062

REACTIONS (10)
  - Poor quality drug administered [Recovered/Resolved]
  - Wrong technique in drug usage process [Recovered/Resolved]
  - Poor quality drug administered [Unknown]
  - Wrong technique in drug usage process [Not Recovered/Not Resolved]
  - Drug effect decreased [Unknown]
  - Anxiety [Unknown]
  - Product adhesion issue [Unknown]
  - Product quality issue [Unknown]
  - Product quality issue [Unknown]
  - Product quality issue [Unknown]
